FAERS Safety Report 8012649-8 (Version None)
Quarter: 2011Q4

REPORT INFORMATION
  Report Type: 
  Country: None (occurrence: None)
  Receive Date: 20111223
  Receipt Date: 20111223
  Transmission Date: 20120403
  Serious: Yes (Other)
  Sender: FDA-Public Use
  Company Number: None

PATIENT
  Sex: Female
  Weight: 34.0198 kg

DRUGS (1)
  1. DULERA [Suspect]
     Indication: CHRONIC OBSTRUCTIVE PULMONARY DISEASE
     Dosage: 2 PUFFS TWICE A DAY PO
     Route: 048
     Dates: start: 20111115, end: 20111205

REACTIONS (5)
  - RESPIRATORY DISORDER [None]
  - EPISTAXIS [None]
  - THROMBOSIS [None]
  - OROPHARYNGEAL PAIN [None]
  - CHILLS [None]
